FAERS Safety Report 9716492 (Version 1)
Quarter: 2013Q4

REPORT INFORMATION
  Report Type: Spontaneous
  Country: US (occurrence: None)
  Receive Date: 20131126
  Receipt Date: 20131126
  Transmission Date: 20140711
  Serious: Yes (Life-Threatening, Hospitalization)
  Sender: FDA-Public Use
  Company Number: None

PATIENT
  Age: 40 Year
  Sex: Female

DRUGS (3)
  1. TRUVADA [Suspect]
     Indication: HIV INFECTION
     Dosage: 1 TAB
     Route: 048
  2. DIFLUCAN [Concomitant]
  3. MS CONTIN [Concomitant]

REACTIONS (7)
  - Asthenia [None]
  - Metabolic acidosis [None]
  - Meningitis [None]
  - Electrolyte imbalance [None]
  - Liver function test abnormal [None]
  - Renal failure acute [None]
  - Renal tubular acidosis [None]
